FAERS Safety Report 18746764 (Version 6)
Quarter: 2021Q1

REPORT INFORMATION
  Report Type: Spontaneous
  Country: BR (occurrence: BR)
  Receive Date: 20210115
  Receipt Date: 20210219
  Transmission Date: 20210419
  Serious: Yes (Other)
  Sender: FDA-Public Use
  Company Number: BR-IPSEN BIOPHARMACEUTICALS, INC.-2019-08897

PATIENT
  Age: 40 Year
  Sex: Female

DRUGS (9)
  1. PROSIGNE [Suspect]
     Active Substance: BOTULINUM TOXIN TYPE A
     Indication: TORTICOLLIS
     Route: 065
     Dates: start: 20201111
  2. BOTOX [Suspect]
     Active Substance: ONABOTULINUMTOXINA
     Indication: TORTICOLLIS
     Dosage: DOSE NOT MORE THAN 400 IU
     Dates: start: 2010
  3. DYSPORT [Suspect]
     Active Substance: ABOBOTULINUMTOXINA
     Indication: TORTICOLLIS
  4. RIVOTRIL [Concomitant]
     Active Substance: CLONAZEPAM
  5. AMYTRIL [Concomitant]
     Active Substance: AMITRIPTYLINE HYDROCHLORIDE
     Indication: TORTICOLLIS
     Dosage: AT NIGHT
  6. DYSPORT [Suspect]
     Active Substance: ABOBOTULINUMTOXINA
     Indication: OFF LABEL USE
  7. BOTOX [Suspect]
     Active Substance: ONABOTULINUMTOXINA
  8. DYSPORT [Suspect]
     Active Substance: ABOBOTULINUMTOXINA
     Indication: TORTICOLLIS
     Dosage: 1000 IU
     Route: 030
     Dates: start: 20190509, end: 20190509
  9. RIVOTRIL [Concomitant]
     Active Substance: CLONAZEPAM

REACTIONS (34)
  - Speech disorder [Recovering/Resolving]
  - Pain in extremity [Recovering/Resolving]
  - Decreased appetite [Recovering/Resolving]
  - Peripheral swelling [Recovering/Resolving]
  - Paraesthesia [Recovering/Resolving]
  - Off label use [Unknown]
  - Confusional state [Recovering/Resolving]
  - Insomnia [Recovering/Resolving]
  - Toothache [Recovered/Resolved]
  - Memory impairment [Not Recovered/Not Resolved]
  - Ear pain [Recovering/Resolving]
  - Bruxism [Recovering/Resolving]
  - Swelling [Not Recovered/Not Resolved]
  - Tendon disorder [Not Recovered/Not Resolved]
  - Hypoacusis [Recovering/Resolving]
  - Drug ineffective [Unknown]
  - Muscular weakness [Recovering/Resolving]
  - Fatigue [Recovering/Resolving]
  - Gait disturbance [Not Recovered/Not Resolved]
  - Dyskinesia [Recovering/Resolving]
  - Ear discomfort [Recovering/Resolving]
  - Back pain [Recovering/Resolving]
  - Pain in jaw [Recovered/Resolved]
  - Vision blurred [Recovered/Resolved]
  - Head discomfort [Recovering/Resolving]
  - Abdominal pain upper [Recovering/Resolving]
  - Condition aggravated [Recovering/Resolving]
  - Hypercholesterolaemia [Recovering/Resolving]
  - Infection [Recovering/Resolving]
  - Prescribed overdose [Unknown]
  - Asthenia [Recovering/Resolving]
  - Nausea [Recovering/Resolving]
  - Visual impairment [Recovering/Resolving]
  - Tongue disorder [Recovering/Resolving]

NARRATIVE: CASE EVENT DATE: 2019
